FAERS Safety Report 5049311-X (Version None)
Quarter: 2006Q3

REPORT INFORMATION
  Report Type: 
  Country: None (occurrence: None)
  Receive Date: 20060706
  Receipt Date: 20060628
  Transmission Date: 20061208
  Serious: Yes (Hospitalization)
  Sender: FDA-Public Use
  Company Number: HQWYE480629JUN06

PATIENT
  Age: 75 Year
  Sex: Female

DRUGS (11)
  1. CORDARONE [Suspect]
     Dosage: 200 MG 1X PER 1 DAY ORAL
     Route: 048
  2. DIGOXIN [Suspect]
     Dosage: 0.125 MG 1X PER 1 DAY ORAL
     Route: 048
     Dates: start: 20060412, end: 20060527
  3. LACTULOSE [Concomitant]
  4. FENOFIBRATE [Concomitant]
  5. OMEPRAZOLE [Concomitant]
  6. LEVOTHYROXINE SODIUM [Concomitant]
  7. LASIX [Concomitant]
  8. PRIMPERAN TAB [Concomitant]
  9. TRANSIPEG (MACROGOL) [Concomitant]
  10. GELOX [Concomitant]
  11. LOVENOX [Concomitant]

REACTIONS (6)
  - BLOOD CREATININE INCREASED [None]
  - BRADYCARDIA [None]
  - DISORIENTATION [None]
  - DRUG INTERACTION [None]
  - THERAPEUTIC AGENT TOXICITY [None]
  - VOMITING [None]
